FAERS Safety Report 7320667-8 (Version None)
Quarter: 2011Q1

REPORT INFORMATION
  Report Type: 
  Country: None (occurrence: None)
  Receive Date: 20110228
  Receipt Date: 20110224
  Transmission Date: 20110831
  Serious: Yes (Life-Threatening, Hospitalization)
  Sender: FDA-Public Use
  Company Number: PHHY2010DE79213

PATIENT
  Sex: Female
  Weight: 48 kg

DRUGS (5)
  1. MYCOPHENOLATE MOFETIL [Concomitant]
  2. PREDNISONE [Concomitant]
  3. CICLOSPORIN [Concomitant]
  4. ACZ885 [Suspect]
     Indication: MUCKLE-WELLS SYNDROME
     Dosage: 150 MG, EVERY 8 WEEKS
     Route: 058
     Dates: start: 20091201
  5. LEVOFLOXACIN [Suspect]

REACTIONS (3)
  - ANAEMIA [None]
  - RESPIRATORY TRACT INFECTION [None]
  - HAEMOGLOBIN DECREASED [None]
